FAERS Safety Report 4453966-8 (Version None)
Quarter: 2004Q3

REPORT INFORMATION
  Report Type: 
  Country: None (occurrence: None)
  Receive Date: 20040920
  Receipt Date: 20040812
  Transmission Date: 20050211
  Serious: Yes (Hospitalization)
  Sender: FDA-Public Use
  Company Number: CH-GLAXOSMITHKLINE-B0342655A

PATIENT
  Age: 44 Year
  Sex: Female
  Weight: 77 kg

DRUGS (10)
  1. LAMICTAL [Suspect]
     Indication: EPILEPSY
     Route: 048
     Dates: start: 20040311, end: 20040407
  2. TRILEPTAL [Suspect]
     Indication: EPILEPSY
     Dosage: 900MG PER DAY
     Route: 048
     Dates: start: 20030101, end: 20040414
  3. PHENOBARBITAL TAB [Suspect]
     Indication: EPILEPSY
     Dosage: 100MG PER DAY
     Route: 048
     Dates: start: 20040331, end: 20040414
  4. KEPPRA [Suspect]
     Indication: EPILEPSY
     Dosage: 1000MG PER DAY
     Route: 048
     Dates: start: 20040416, end: 20040422
  5. LEVOTHYROXINE SODIUM [Concomitant]
     Dosage: .05MG PER DAY
  6. PARACETAMOL [Concomitant]
  7. VALIUM [Concomitant]
     Indication: EPILEPSY
     Dosage: 50MG PER DAY
     Route: 042
     Dates: start: 20040414
  8. IMPORTAL [Concomitant]
     Indication: CONSTIPATION
  9. FRAGMIN P [Concomitant]
     Dosage: 2500IU PER DAY
     Route: 058
     Dates: start: 20040414
  10. ACETAMINOPHEN [Concomitant]
     Dates: start: 20040420

REACTIONS (9)
  - BLOOD CREATINE PHOSPHOKINASE INCREASED [None]
  - C-REACTIVE PROTEIN INCREASED [None]
  - CONSTIPATION [None]
  - HEPATIC ENZYME INCREASED [None]
  - HYPERSENSITIVITY [None]
  - PYREXIA [None]
  - RASH MACULO-PAPULAR [None]
  - WHITE BLOOD CELL COUNT ABNORMAL [None]
  - WHITE BLOOD CELL DISORDER [None]
